FAERS Safety Report 25154052 (Version 2)
Quarter: 2025Q2

REPORT INFORMATION
  Report Type: Report from Study
  Country: MX (occurrence: MX)
  Receive Date: 20250403
  Receipt Date: 20250529
  Transmission Date: 20250717
  Serious: No
  Sender: SANDOZ
  Company Number: MX-SANDOZ-SDZ2025MX019789

PATIENT
  Age: 11 Year
  Sex: Male
  Weight: 48 kg

DRUGS (1)
  1. OMNITROPE [Suspect]
     Active Substance: SOMATROPIN
     Indication: Precocious puberty
     Route: 058
     Dates: start: 20240801

REACTIONS (3)
  - Wrong technique in product usage process [Unknown]
  - Circumstance or information capable of leading to device use error [Unknown]
  - Device mechanical issue [Unknown]

NARRATIVE: CASE EVENT DATE: 20250326
